FAERS Safety Report 16132982 (Version 4)
Quarter: 2019Q3

REPORT INFORMATION
  Report Type: Spontaneous
  Country: US (occurrence: US)
  Receive Date: 20190329
  Receipt Date: 20190830
  Transmission Date: 20191004
  Serious: Yes (Other)
  Sender: FDA-Public Use
  Company Number: US-PFIZER INC-2019131935

PATIENT
  Age: 55 Year
  Sex: Male

DRUGS (19)
  1. LYRICA [Suspect]
     Active Substance: PREGABALIN
     Indication: NEUROPATHY PERIPHERAL
     Dosage: 50 MG, 3X/DAY
     Route: 048
     Dates: start: 20181009, end: 20190220
  2. FISH OIL [Concomitant]
     Active Substance: FISH OIL
     Dosage: UNK (120 MG-180 MG CAPSULE)
     Route: 048
  3. GLIPIZIDE. [Concomitant]
     Active Substance: GLIPIZIDE
     Dosage: 2.5 MG, 1X/DAY (TAKE ONE TABLET BY MOUTH ONCE DAILY)
     Route: 048
  4. MELATONIN [Concomitant]
     Active Substance: MELATONIN
     Dosage: 10 MG, 1X/DAY (TAKE 1 CAPSULE(S) EVERY DAY BY ORAL ROUTE AT BEDTIME FOR 90 DAYS.)
     Route: 048
  5. HYDROXYZINE PAMOATE. [Concomitant]
     Active Substance: HYDROXYZINE PAMOATE
     Dosage: 50 MG, 4X/DAY
     Route: 048
  6. TOPIRAMATE. [Concomitant]
     Active Substance: TOPIRAMATE
     Dosage: 50 MG, 3X/DAY
     Route: 048
  7. LISINOPRIL. [Concomitant]
     Active Substance: LISINOPRIL
     Dosage: 10 MG, 1X/DAY (TAKE ONE TABLET BY MOUTH ONCE DAILY)
     Route: 048
  8. LOVASTATIN. [Concomitant]
     Active Substance: LOVASTATIN
     Dosage: 20 MG, 1X/DAY (TAKE ONE TABLET BY MOUTH ONCE DAILY)
     Route: 048
  9. LYRICA [Suspect]
     Active Substance: PREGABALIN
     Indication: DIABETIC NEUROPATHY
     Dosage: 100 MG, 3X/DAY
     Route: 048
     Dates: start: 201810, end: 20190722
  10. CLOPIDOGREL [Concomitant]
     Active Substance: CLOPIDOGREL BISULFATE
     Dosage: 75 MG, DAILY (TAKE 1 TABLET(S) TWICE A DAY BY ORAL ROUTE FOR 90 DAYS.)
     Route: 048
  11. GLIPIZIDE. [Concomitant]
     Active Substance: GLIPIZIDE
     Dosage: 10 MG, DAILY (1 TABLET(S) EVERY DAY BY ORAL ROUTE.)
     Route: 048
  12. CYCLOBENZAPRINE. [Concomitant]
     Active Substance: CYCLOBENZAPRINE
     Dosage: 5 MG, AS NEEDED (TAKE 1 TABLET(S) 3 TIMES A DAY BY ORAL ROUTE AS NEEDED FOR 90 DAYS)
     Route: 048
  13. EFFEXOR XR [Concomitant]
     Active Substance: VENLAFAXINE HYDROCHLORIDE
     Dosage: 75 MG, 3X/DAY
     Route: 048
  14. GLIPIZIDE. [Concomitant]
     Active Substance: GLIPIZIDE
     Dosage: 5 MG, 1X/DAY (TAKE ONE TABLET BY MOUTH ONCE DAILY)
     Route: 048
  15. METFORMIN [Concomitant]
     Active Substance: METFORMIN HYDROCHLORIDE
     Dosage: 1000 MG, 2X/DAY
     Route: 048
  16. OMEPRAZOLE. [Concomitant]
     Active Substance: OMEPRAZOLE
     Dosage: 20 MG, 1X/DAY (TAKE ONE CAPSULE BY MOUTH ONCE DAILY)
     Route: 048
  17. CARVEDILOL. [Concomitant]
     Active Substance: CARVEDILOL
     Dosage: 3.125 MG, 2X/DAY
     Route: 048
  18. GABAPENTIN. [Concomitant]
     Active Substance: GABAPENTIN
     Dosage: 400 MG, 4X/DAY
     Route: 048
  19. ASPRIN [Concomitant]
     Active Substance: ASPIRIN
     Dosage: 325 MG, DAILY (1 TABLET(S) EVERY DAY BY ORAL ROUTE.)
     Route: 048

REACTIONS (4)
  - Diastolic dysfunction [Unknown]
  - Neuropathy peripheral [Unknown]
  - Drug ineffective [Unknown]
  - Condition aggravated [Unknown]

NARRATIVE: CASE EVENT DATE: 20190520
